FAERS Safety Report 5962688-3 (Version None)
Quarter: 2008Q4

REPORT INFORMATION
  Report Type: 
  Country: None (occurrence: None)
  Receive Date: 20081124
  Receipt Date: 20081114
  Transmission Date: 20090506
  Serious: Yes (Other)
  Sender: FDA-Public Use
  Company Number: CA-JNJFOC-20081104241

PATIENT
  Sex: Female
  Weight: 64.8 kg

DRUGS (1)
  1. REMICADE [Suspect]
     Indication: BEHCET'S SYNDROME
     Route: 042

REACTIONS (4)
  - CYSTITIS [None]
  - RASH [None]
  - SKIN INFECTION [None]
  - SKIN LESION [None]
